FAERS Safety Report 12326194 (Version 1)
Quarter: 2016Q2

REPORT INFORMATION
  Report Type: Report from Study
  Country: SG (occurrence: SG)
  Receive Date: 20160503
  Receipt Date: 20160503
  Transmission Date: 20160815
  Serious: Yes (Hospitalization)
  Sender: FDA-Public Use
  Company Number: SG-ACCORD-040031

PATIENT

DRUGS (5)
  1. IRINOTECAN [Suspect]
     Active Substance: IRINOTECAN
     Indication: COLORECTAL CANCER METASTATIC
     Dosage: RECEIVED OVER PERIOD OF 90 MIN, AS FOLFIRI REGIMEN.
     Route: 042
  2. AFLIBERCEPT [Suspect]
     Active Substance: AFLIBERCEPT
     Indication: COLORECTAL CANCER METASTATIC
     Dosage: RECEIVED CYCLICAL 4 MG/KG IV, OVER A PERIOD OF 1 HR EVERY 2 WEEKS STARTING ON DAY 01
     Route: 042
  3. FLUOROURACIL. [Suspect]
     Active Substance: FLUOROURACIL
     Indication: COLORECTAL CANCER METASTATIC
     Dosage: RECEIVED 400 MG/M2 BOLUS AND 2400 MG/M2 CONTINUOUS INFUSION OVER A PERIOD OF 46 H, AS FOLFIRI.
     Route: 042
  4. ATROPINE. [Concomitant]
     Active Substance: ATROPINE
     Indication: PREMEDICATION
  5. FOLINIC ACID [Suspect]
     Active Substance: LEUCOVORIN
     Indication: COLORECTAL CANCER METASTATIC
     Dosage: RECEIVED 400 MG/M2 IV OVER A PERIOD OF 2 HR, AS FOLFIRI.
     Route: 042

REACTIONS (2)
  - Neutropenia [Recovered/Resolved]
  - Anal abscess [Recovered/Resolved]
